FAERS Safety Report 17785603 (Version 2)
Quarter: 2020Q2

REPORT INFORMATION
  Report Type: Spontaneous
  Country: IE (occurrence: IE)
  Receive Date: 20200514
  Receipt Date: 20200619
  Transmission Date: 20200714
  Serious: Yes (Other)
  Sender: FDA-Public Use
  Company Number: IE-BRACCO-2020IE01918

PATIENT
  Age: 73 Year
  Sex: Male

DRUGS (7)
  1. HEPARIN [Suspect]
     Active Substance: HEPARIN SODIUM
     Indication: ANGIOGRAM
     Route: 013
     Dates: start: 20200416, end: 20200416
  2. NIOPAM [Suspect]
     Active Substance: IOPAMIDOL
     Indication: ANGIOCARDIOGRAM
     Route: 013
     Dates: start: 20200416, end: 20200416
  3. ATORVASTATIN                       /01326102/ [Concomitant]
     Active Substance: ATORVASTATIN
     Dosage: UNK, QD
  4. COZAAR COMP [Concomitant]
     Active Substance: HYDROCHLOROTHIAZIDE\LOSARTAN POTASSIUM
     Dosage: UNK, QD
  5. MULTAQ [Concomitant]
     Active Substance: DRONEDARONE
     Dosage: UNK, BID (EVERY 12 HOURS)
  6. VERAPAMIL                          /00014302/ [Suspect]
     Active Substance: VERAPAMIL HYDROCHLORIDE
     Indication: ANGIOGRAM
     Route: 013
     Dates: start: 20200416, end: 20200416
  7. ELIQUIS [Concomitant]
     Active Substance: APIXABAN
     Dosage: UNK, BID (EVERY 12 HOURS)
     Route: 048

REACTIONS (3)
  - Ataxia [Recovered/Resolved]
  - Gait disturbance [Recovered/Resolved]
  - Cerebrovascular accident [Recovered/Resolved]

NARRATIVE: CASE EVENT DATE: 20200416
